FAERS Safety Report 21771755 (Version 2)
Quarter: 2023Q1

REPORT INFORMATION
  Report Type: Spontaneous
  Country: CZ (occurrence: CZ)
  Receive Date: 20221223
  Receipt Date: 20230220
  Transmission Date: 20230418
  Serious: Yes (Other)
  Sender: FDA-Public Use
  Company Number: None

PATIENT

DRUGS (1)
  1. FLUTICASONE PROPIONATE [Suspect]
     Active Substance: FLUTICASONE PROPIONATE
     Indication: Asthma
     Dosage: 50 UG (WITH A 1.5 WEEKS BREAK2-0-2 (TWO ^SPRAYS^ IN THE MORNING, TWO IN THE EVENING))
     Route: 055
     Dates: start: 20220915, end: 20221115

REACTIONS (2)
  - Disturbance in attention [Recovering/Resolving]
  - Tic [Recovering/Resolving]

NARRATIVE: CASE EVENT DATE: 20221001
